FAERS Safety Report 7137084 (Version 6)
Quarter: 2013Q2

REPORT INFORMATION
  Report Type: Spontaneous
  Country: US (occurrence: US)
  Receive Date: 20091002
  Receipt Date: 20130425
  Transmission Date: 20140414
  Serious: No
  Sender: FDA-Public Use
  Company Number: US-ASTRAZENECA-2008UW15426

PATIENT
  Age: 70 Year
  Sex: Female
  Weight: 65.8 kg

DRUGS (14)
  1. ARIMIDEX [Suspect]
     Indication: BREAST CANCER
     Route: 048
     Dates: start: 20070601
  2. ARIMIDEX [Suspect]
     Indication: BREAST CANCER
     Route: 048
     Dates: start: 20080601
  3. ARIMIDEX [Suspect]
     Indication: BREAST CANCER
     Route: 048
     Dates: start: 20080301
  4. ARIMIDEX [Suspect]
     Indication: BREAST CANCER
     Route: 048
     Dates: start: 200806
  5. ARIMIDEX [Suspect]
     Indication: BREAST CANCER
     Route: 048
     Dates: start: 200906
  6. ARIMIDEX [Suspect]
     Indication: BREAST CANCER
     Dosage: GENERIC, 1 MG DAILY
     Route: 048
  7. ARIMIDEX [Suspect]
     Indication: BREAST CANCER
     Route: 048
  8. ARIMIDEX [Suspect]
     Indication: BREAST CANCER
     Route: 048
  9. BACTRIM DS [Suspect]
     Indication: INFECTION
     Route: 065
  10. CODEINE [Suspect]
     Indication: TOOTHACHE
     Route: 065
     Dates: start: 2011
  11. HYDROCODONE [Concomitant]
     Indication: TOOTHACHE
  12. MOTRIN [Concomitant]
     Indication: TOOTHACHE
  13. DRAMAMINE [Concomitant]
     Indication: SLEEP DISORDER
     Dosage: AT NIGHT
     Route: 048
  14. ACETAZOLAMIDE PM [Concomitant]
     Indication: SLEEP DISORDER

REACTIONS (45)
  - Depression [Unknown]
  - Weight loss poor [Unknown]
  - Insomnia [Unknown]
  - Mood altered [Not Recovered/Not Resolved]
  - Anxiety [Unknown]
  - Tremor [Unknown]
  - Hypertonic bladder [Unknown]
  - Nervousness [Unknown]
  - Nocturia [Unknown]
  - Cholelithiasis [Unknown]
  - Cystitis interstitial [Unknown]
  - Libido increased [Unknown]
  - Weight increased [Unknown]
  - Aggression [Unknown]
  - Pain in extremity [Unknown]
  - Hyperaesthesia [Unknown]
  - Hypoacusis [Unknown]
  - Pain in extremity [Unknown]
  - Bladder prolapse [Unknown]
  - Intestinal prolapse [Unknown]
  - Toothache [Unknown]
  - Tachycardia [Unknown]
  - Uterine prolapse [Unknown]
  - Urinary tract infection [Unknown]
  - Adverse event [Unknown]
  - Anal pruritus [Unknown]
  - Depressed mood [Unknown]
  - Sleep disorder [Not Recovered/Not Resolved]
  - Breast pain [Unknown]
  - Infection [Unknown]
  - Memory impairment [Unknown]
  - Malaise [Unknown]
  - Stomatitis [Unknown]
  - Palpitations [Unknown]
  - Tooth disorder [None]
  - Scar [Unknown]
  - Mobility decreased [Unknown]
  - Pain [Unknown]
  - Nausea [Unknown]
  - Decreased appetite [Unknown]
  - Pruritus [Unknown]
  - Hypersomnia [Unknown]
  - Alopecia [Not Recovered/Not Resolved]
  - Fatigue [Unknown]
  - Somnolence [Unknown]
